FAERS Safety Report 12678093 (Version 1)
Quarter: 2016Q3

REPORT INFORMATION
  Report Type: Report from Study
  Country: US (occurrence: US)
  Receive Date: 20160823
  Receipt Date: 20160823
  Transmission Date: 20161109
  Serious: Yes (Hospitalization)
  Sender: FDA-Public Use
  Company Number: US-ABBVIE-16K-163-1705128-00

PATIENT
  Age: 81 Year
  Sex: Male
  Weight: 104.42 kg

DRUGS (5)
  1. ZYTIGA (NON-ABBVIE) [Concomitant]
     Indication: PROSTATE CANCER
  2. SPIRIVA (NON-ABBVIE) [Concomitant]
     Indication: PRODUCT USED FOR UNKNOWN INDICATION
  3. PREDNISONE (NON-ABBVIE) [Concomitant]
     Indication: NEOPLASM MALIGNANT
  4. HUMIRA [Suspect]
     Active Substance: ADALIMUMAB
     Indication: RHEUMATOID ARTHRITIS
     Route: 058
  5. LUPRON DEPOT [Suspect]
     Active Substance: LEUPROLIDE ACETATE
     Indication: PROSTATE CANCER
     Route: 030

REACTIONS (2)
  - Nephrolithiasis [Recovering/Resolving]
  - Infection [Recovering/Resolving]

NARRATIVE: CASE EVENT DATE: 20160801
